FAERS Safety Report 9150545 (Version 1)
Quarter: 2013Q1

REPORT INFORMATION
  Report Type: Spontaneous
  Country: US (occurrence: US)
  Receive Date: 20130308
  Receipt Date: 20130308
  Transmission Date: 20140127
  Serious: No
  Sender: FDA-Public Use
  Company Number: US-GLAXOSMITHKLINE-A0996975A

PATIENT
  Age: 46 Year
  Sex: Female

DRUGS (1)
  1. NICORETTE FRESHMINT 4MG [Suspect]
     Indication: EX-TOBACCO USER
     Dates: start: 20121007, end: 20121007

REACTIONS (3)
  - Hypersensitivity [Recovered/Resolved]
  - Urticaria [Recovered/Resolved]
  - Pruritus [Recovered/Resolved]
